FAERS Safety Report 10218241 (Version 1)
Quarter: 2014Q2

REPORT INFORMATION
  Report Type: Spontaneous
  Country: US (occurrence: US)
  Receive Date: 20140605
  Receipt Date: 20140605
  Transmission Date: 20141212
  Serious: Yes (Other)
  Sender: FDA-Public Use
  Company Number: US-BRISTOL-MYERS SQUIBB COMPANY-20810529

PATIENT
  Age: 55 Year
  Sex: Male

DRUGS (11)
  1. REYATAZ [Suspect]
     Indication: HIV INFECTION
  2. SUSTIVA [Suspect]
  3. ISENTRESS [Concomitant]
  4. DILTIAZEM HCL [Concomitant]
  5. QUINAPRIL [Concomitant]
  6. GABAPENTIN [Concomitant]
  7. METFORMIN [Concomitant]
  8. FENOFIBRATE [Concomitant]
  9. ALLOPURINOL [Concomitant]
  10. TESTOSTERONE CYPIONATE [Concomitant]
  11. DOMPERIDONE [Concomitant]

REACTIONS (2)
  - Nephrolithiasis [Unknown]
  - Drug resistance [Unknown]
